FAERS Safety Report 17386959 (Version 1)
Quarter: 2020Q1

REPORT INFORMATION
  Report Type: Spontaneous
  Country: DE (occurrence: DE)
  Receive Date: 20200206
  Receipt Date: 20200206
  Transmission Date: 20200409
  Serious: Yes (Other)
  Sender: FDA-Public Use
  Company Number: NVSC2020DE026593

PATIENT
  Age: 65 Year
  Sex: Female

DRUGS (2)
  1. PAZOPANIB [Suspect]
     Active Substance: PAZOPANIB
     Dosage: 800 MG, UNKNOWN
     Route: 065
     Dates: start: 2018, end: 201808
  2. PAZOPANIB [Suspect]
     Active Substance: PAZOPANIB
     Indication: RENAL CANCER
     Dosage: 400 MG, UNKNOWN
     Route: 065
     Dates: start: 201804

REACTIONS (5)
  - Metastases to bone [Unknown]
  - Ageusia [Unknown]
  - Fatigue [Unknown]
  - Resorption bone increased [Not Recovered/Not Resolved]
  - Decreased appetite [Unknown]

NARRATIVE: CASE EVENT DATE: 2018
